FAERS Safety Report 8551819-7 (Version None)
Quarter: 2012Q3

REPORT INFORMATION
  Report Type: 
  Country: None (occurrence: None)
  Receive Date: 20120730
  Receipt Date: 20120723
  Transmission Date: 20120928
  Serious: Yes (Other)
  Sender: FDA-Public Use
  Company Number: JP-AMGEN-JPNCT2012047161

PATIENT
  Age: 74 Year
  Sex: Male

DRUGS (5)
  1. LEUCOVORIN CALCIUM [Concomitant]
     Indication: COLORECTAL CANCER
     Dosage: UNK
     Route: 041
     Dates: start: 20120706
  2. FLUOROURACIL [Concomitant]
     Dosage: UNK
     Route: 041
     Dates: start: 20120706
  3. PANITUMUMAB [Suspect]
     Indication: COLORECTAL CANCER
     Dosage: 400 MG, Q2WK
     Route: 041
     Dates: start: 20120706
  4. OXALIPLATIN [Concomitant]
     Indication: COLORECTAL CANCER
     Route: 041
     Dates: start: 20120706
  5. FLUOROURACIL [Concomitant]
     Indication: COLORECTAL CANCER
     Dosage: UNK
     Route: 040
     Dates: start: 20120706

REACTIONS (1)
  - INTERSTITIAL LUNG DISEASE [None]
